FAERS Safety Report 8124391 (Version 2)
Quarter: 2014Q1

REPORT INFORMATION
  Report Type: Spontaneous
  Country: US (occurrence: US)
  Receive Date: 20110907
  Receipt Date: 20140305
  Transmission Date: 20141002
  Serious: Yes (Hospitalization)
  Sender: FDA-Public Use
  Company Number: US-GLAXOSMITHKLINE-A0743840A

PATIENT
  Age: 62 Year
  Sex: Male
  Weight: 86.4 kg

DRUGS (8)
  1. AVANDIA [Suspect]
     Indication: DIABETES MELLITUS
     Dosage: 8MG PER DAY
     Route: 048
     Dates: start: 20001227, end: 2009
  2. ALLEGRA [Concomitant]
  3. CLARINEX [Concomitant]
  4. LISINOPRIL [Concomitant]
  5. AMARYL [Concomitant]
  6. LISINOPRIL [Concomitant]
  7. VIOXX [Concomitant]
  8. ZOCOR [Concomitant]

REACTIONS (6)
  - Cerebrovascular accident [Unknown]
  - Myocardial infarction [Unknown]
  - Atrial fibrillation [Unknown]
  - Cardiac failure congestive [Unknown]
  - Mitral valve disease [Unknown]
  - Depression [Unknown]
